FAERS Safety Report 5171189-4 (Version None)
Quarter: 2006Q4

REPORT INFORMATION
  Report Type: 
  Country: None (occurrence: None)
  Receive Date: 20061213
  Receipt Date: 20051207
  Transmission Date: 20070319
  Serious: Yes (Hospitalization)
  Sender: FDA-Public Use
  Company Number: US-AMGEN-STX160515

PATIENT
  Sex: Male
  Weight: 72.6 kg

DRUGS (2)
  1. ENBREL [Suspect]
     Indication: PSORIASIS
     Dates: start: 20050907, end: 20051201
  2. METHOTREXATE [Concomitant]
     Route: 048
     Dates: start: 20030101, end: 20051205

REACTIONS (1)
  - VARICELLA [None]
